FAERS Safety Report 5487885-5 (Version None)
Quarter: 2007Q4

REPORT INFORMATION
  Report Type: 
  Country: None (occurrence: None)
  Receive Date: 20071017
  Receipt Date: 20071012
  Transmission Date: 20080405
  Serious: Yes (Hospitalization)
  Sender: FDA-Public Use
  Company Number: JP-BRISTOL-MYERS SQUIBB COMPANY-13941588

PATIENT
  Age: 74 Year
  Sex: Female

DRUGS (7)
  1. TAXOL [Suspect]
     Indication: BLADDER CANCER
     Route: 041
     Dates: start: 20070928
  2. PARAPLATIN [Suspect]
     Indication: BLADDER CANCER
     Route: 041
     Dates: start: 20070928
  3. AMARYL [Concomitant]
     Route: 048
  4. BASEN [Concomitant]
     Route: 048
  5. MOBIC [Concomitant]
     Route: 048
  6. MAGMITT [Concomitant]
     Route: 048
  7. OXYCONTIN [Concomitant]
     Route: 048

REACTIONS (2)
  - ANOREXIA [None]
  - DIZZINESS [None]
